FAERS Safety Report 13741155 (Version 3)
Quarter: 2017Q3

REPORT INFORMATION
  Report Type: Spontaneous
  Country: IT (occurrence: IT)
  Receive Date: 20170711
  Receipt Date: 20170814
  Transmission Date: 20171127
  Serious: Yes (Other)
  Sender: FDA-Public Use
  Company Number: IT-ACCORD-053382

PATIENT
  Age: 68 Year
  Sex: Male
  Weight: 91 kg

DRUGS (7)
  1. XATRAL [Concomitant]
     Active Substance: ALFUZOSIN
  2. CLEXANE [Concomitant]
     Active Substance: ENOXAPARIN SODIUM
  3. ESOMEPRAZOLE [Concomitant]
     Active Substance: ESOMEPRAZOLE
  4. FLUOROURACIL. [Suspect]
     Active Substance: FLUOROURACIL
     Indication: ADENOCARCINOMA GASTRIC
     Dosage: FOLFOX + HERCEPTIN CYCLE 2 AND 3,??ALSO RECEIVED IV DRIP 4800 MG CYCLICAL VIA IV DRIP
     Route: 040
     Dates: start: 20161219
  5. HERCEPTIN [Suspect]
     Active Substance: TRASTUZUMAB
     Indication: ADENOCARCINOMA GASTRIC
     Dosage: DOSE: 184 MG CYCLICAL,??FOLFOX + HERCEPTIN CYCLE 2 AND 3,
     Route: 058
     Dates: start: 20161219
  6. OXALIPLATIN. [Suspect]
     Active Substance: OXALIPLATIN
     Indication: ADENOCARCINOMA GASTRIC
     Dosage: FOLFOX + HERCEPTIN CYCLE 2 AND 3,??ALSO RECEIVED AT THE DOSE OF 125 MG CYCLICAL
     Route: 042
     Dates: start: 20161219
  7. LEVOFOLINIC ACID [Concomitant]
     Active Substance: LEVOLEUCOVORIN
     Indication: ADENOCARCINOMA GASTRIC
     Dosage: FOLFOX + HERCEPTIN CYCLE 2 AND 3
     Route: 042
     Dates: start: 20161219, end: 20170130

REACTIONS (6)
  - Paraesthesia [Not Recovered/Not Resolved]
  - Pruritus [Recovering/Resolving]
  - Thrombocytopenia [Recovering/Resolving]
  - Off label use [Unknown]
  - Oedema peripheral [Recovering/Resolving]
  - Hypertension [Recovering/Resolving]

NARRATIVE: CASE EVENT DATE: 20170110
